FAERS Safety Report 9061481 (Version 1)
Quarter: 2013Q1

REPORT INFORMATION
  Report Type: Spontaneous
  Country: US (occurrence: US)
  Receive Date: 20130204
  Receipt Date: 20130204
  Transmission Date: 20140127
  Serious: Yes (Hospitalization)
  Sender: FDA-Public Use
  Company Number: US-JNJFOC-20130112782

PATIENT
  Sex: Female

DRUGS (3)
  1. TYLENOL [Suspect]
     Route: 065
  2. TYLENOL [Suspect]
     Indication: DYSMENORRHOEA
     Route: 065
  3. MIDOL [Suspect]
     Indication: DYSMENORRHOEA
     Route: 065

REACTIONS (2)
  - Hepatic failure [Unknown]
  - Intentional overdose [Unknown]
